FAERS Safety Report 4658442-5 (Version None)
Quarter: 2005Q2

REPORT INFORMATION
  Report Type: 
  Country: None (occurrence: None)
  Receive Date: 20050511
  Receipt Date: 20050503
  Transmission Date: 20051028
  Serious: Yes (Hospitalization)
  Sender: FDA-Public Use
  Company Number: 200511161EU

PATIENT
  Age: 62 Year
  Sex: Female

DRUGS (7)
  1. ARAVA [Suspect]
     Indication: RHEUMATOID ARTHRITIS
     Route: 048
     Dates: end: 20050322
  2. FOSAMAX [Concomitant]
     Route: 048
  3. CALCICHEW-D3 [Concomitant]
     Route: 048
  4. CELEBRA [Concomitant]
     Route: 048
  5. BUVENTOL EASYHALER [Concomitant]
     Route: 055
  6. BECLOMET EASYHALER [Concomitant]
     Route: 055
  7. NASONEX [Concomitant]
     Route: 045

REACTIONS (4)
  - BLOOD PRESSURE INCREASED [None]
  - HEPATIC ENZYME INCREASED [None]
  - NERVE ROOT LESION [None]
  - TRANSAMINASES INCREASED [None]
